FAERS Safety Report 5729306-0 (Version None)
Quarter: 2008Q2

REPORT INFORMATION
  Report Type: 
  Country: None (occurrence: None)
  Receive Date: 20080506
  Receipt Date: 20080424
  Transmission Date: 20081010
  Serious: Yes (Other)
  Sender: FDA-Public Use
  Company Number: AU-PFIZER INC-2008035741

PATIENT
  Sex: Female

DRUGS (1)
  1. DILANTIN [Suspect]
     Indication: GRAND MAL CONVULSION

REACTIONS (2)
  - ANTICONVULSANT DRUG LEVEL INCREASED [None]
  - GRAND MAL CONVULSION [None]
